FAERS Safety Report 7009345-2 (Version None)
Quarter: 2010Q3

REPORT INFORMATION
  Report Type: 
  Country: None (occurrence: None)
  Receive Date: 20100921
  Receipt Date: 20100908
  Transmission Date: 20110219
  Serious: Yes (Other)
  Sender: FDA-Public Use
  Company Number: AVE_01979_2010

PATIENT
  Age: 55 Year
  Sex: Female

DRUGS (1)
  1. CLONIDINE [Suspect]
     Indication: HYPERTENSION
     Dosage: 0.2 MG QD, VIA 1/WEEKLY PATCH TRANSDERMAL
     Route: 062
     Dates: start: 20100908, end: 20100908

REACTIONS (3)
  - DIZZINESS [None]
  - HYPERSENSITIVITY [None]
  - NAUSEA [None]
